FAERS Safety Report 19705424 (Version 1)
Quarter: 2021Q3

REPORT INFORMATION
  Report Type: Spontaneous
  Country: US (occurrence: US)
  Receive Date: 20210816
  Receipt Date: 20210816
  Transmission Date: 20211014
  Serious: Yes (Other)
  Sender: FDA-Public Use
  Company Number: US-SA-2021SA265474

PATIENT

DRUGS (1)
  1. UNISOM SLEEPGELS NIGHTTIME SLEEP?AID [Suspect]
     Active Substance: DIPHENHYDRAMINE HYDROCHLORIDE
     Indication: INSOMNIA
     Dosage: UNK

REACTIONS (5)
  - Malaise [Unknown]
  - Drug ineffective [Unknown]
  - Hallucination [Unknown]
  - Product use in unapproved indication [Unknown]
  - Insomnia [Unknown]
